FAERS Safety Report 4698639-1 (Version None)
Quarter: 2005Q2

REPORT INFORMATION
  Report Type: 
  Country: None (occurrence: None)
  Receive Date: 20050622
  Receipt Date: 20050610
  Transmission Date: 20051028
  Serious: Yes (Life-Threatening, Hospitalization)
  Sender: FDA-Public Use
  Company Number: MK200506-0041-1

PATIENT
  Age: 44 Year
  Sex: Male

DRUGS (1)
  1. OPTIRAY 320 [Suspect]
     Indication: COMPUTERISED TOMOGRAM
     Dosage: 150 ML, ONE TIME, IV
     Route: 042
     Dates: start: 20050504, end: 20050504

REACTIONS (5)
  - CARDIO-RESPIRATORY ARREST [None]
  - COUGH [None]
  - MYOCARDIAL INFARCTION [None]
  - PROCEDURAL COMPLICATION [None]
  - PRURITUS [None]
